FAERS Safety Report 9145634 (Version 1)
Quarter: 2013Q1

REPORT INFORMATION
  Report Type: Spontaneous
  Country: US (occurrence: US)
  Receive Date: 20130307
  Receipt Date: 20130307
  Transmission Date: 20140127
  Serious: No
  Sender: FDA-Public Use
  Company Number: US-PFIZER INC-2013074577

PATIENT
  Sex: 0

DRUGS (2)
  1. NORVASC [Suspect]
     Dosage: 10 MG, UNK
  2. DETROL LA [Suspect]
     Dosage: 2 MG, UNK

REACTIONS (1)
  - Drug hypersensitivity [Unknown]
